FAERS Safety Report 8246024-8 (Version None)
Quarter: 2012Q1

REPORT INFORMATION
  Report Type: 
  Country: None (occurrence: None)
  Receive Date: 20120330
  Receipt Date: 20120320
  Transmission Date: 20120608
  Serious: Yes (Other)
  Sender: FDA-Public Use
  Company Number: AU-JNJFOC-20120309961

PATIENT
  Sex: Male

DRUGS (2)
  1. REMICADE [Suspect]
     Indication: PYODERMA GANGRENOSUM
     Dosage: 3RD AND 4TH INFUSION NOV-DEC
     Route: 042
  2. REMICADE [Suspect]
     Indication: HIDRADENITIS
     Dosage: 3RD AND 4TH INFUSION NOV-DEC
     Route: 042

REACTIONS (3)
  - LUPUS-LIKE SYNDROME [None]
  - OFF LABEL USE [None]
  - PSORIASIS [None]
